FAERS Safety Report 8500612-X (Version None)
Quarter: 2012Q3

REPORT INFORMATION
  Report Type: 
  Country: None (occurrence: None)
  Receive Date: 20120710
  Receipt Date: 20120706
  Transmission Date: 20120928
  Serious: Yes (Life-Threatening, Other)
  Sender: FDA-Public Use
  Company Number: US-ROCHE-1077684

PATIENT
  Sex: Male
  Weight: 120.76 kg

DRUGS (12)
  1. CRESTOR [Concomitant]
  2. PROBENECID [Concomitant]
  3. ACETAMINOPHEN [Concomitant]
  4. ASPIRIN [Concomitant]
  5. ACTEMRA [Suspect]
     Indication: RHEUMATOID ARTHRITIS
     Route: 042
     Dates: start: 20110906
  6. LASIX [Concomitant]
  7. FOLIC ACID [Concomitant]
  8. RANITIDINE [Concomitant]
  9. CALCITRIOL [Concomitant]
  10. GABAPENTIN [Concomitant]
  11. AMLODIPINE [Concomitant]
  12. TRAMADOL HCL [Concomitant]

REACTIONS (1)
  - CEREBROVASCULAR ACCIDENT [None]
